FAERS Safety Report 7525296-9 (Version None)
Quarter: 2011Q2

REPORT INFORMATION
  Report Type: 
  Country: None (occurrence: None)
  Receive Date: 20110606
  Receipt Date: 20110524
  Transmission Date: 20111010
  Serious: Yes (Hospitalization)
  Sender: FDA-Public Use
  Company Number: FR-JNJFOC-20110600648

PATIENT
  Sex: Male

DRUGS (5)
  1. ACETAMINOPHEN [Concomitant]
  2. PAROXETINE HCL [Suspect]
     Indication: PRODUCT USED FOR UNKNOWN INDICATION
     Route: 048
     Dates: end: 20100815
  3. TRAMADOL HCL [Suspect]
     Indication: PRODUCT USED FOR UNKNOWN INDICATION
     Route: 048
     Dates: start: 20100701, end: 20100815
  4. ALLOPURINOL [Concomitant]
  5. VOLTAREN [Concomitant]

REACTIONS (4)
  - HALLUCINATION [None]
  - CONFUSIONAL STATE [None]
  - FAECALOMA [None]
  - URINARY RETENTION [None]
